FAERS Safety Report 5510217-0 (Version None)
Quarter: 2007Q4

REPORT INFORMATION
  Report Type: 
  Country: None (occurrence: None)
  Receive Date: 20071108
  Receipt Date: 20071025
  Transmission Date: 20080405
  Serious: Yes (Death, Hospitalization)
  Sender: FDA-Public Use
  Company Number: JP-ELI_LILLY_AND_COMPANY-JP200709000135

PATIENT
  Sex: Male
  Weight: 47 kg

DRUGS (9)
  1. PEMETREXED [Suspect]
     Indication: PLEURAL MESOTHELIOMA
     Dosage: 740 MG, OTHER
     Route: 065
     Dates: start: 20070820, end: 20070820
  2. CISPLATIN [Suspect]
     Indication: PLEURAL MESOTHELIOMA
     Dosage: 110 MG, OTHER
     Route: 042
     Dates: start: 20070820, end: 20070820
  3. PANVITAN [Concomitant]
     Indication: VITAMIN SUPPLEMENTATION
     Dosage: 0.5 MG, DAILY (1/D)
     Route: 048
     Dates: start: 20070810, end: 20070823
  4. METHYCOBAL [Concomitant]
     Indication: VITAMIN SUPPLEMENTATION
     Dosage: 1 MG, OTHER
     Route: 030
     Dates: start: 20070810, end: 20070810
  5. GOODMIN [Concomitant]
     Dosage: 0.25 MG, DAILY (1/D)
     Route: 048
     Dates: start: 20070801, end: 20070823
  6. POSTERISAN FORTE [Concomitant]
     Dosage: 2 G, AS NEEDED
     Route: 054
     Dates: start: 20070802, end: 20070823
  7. OXYCONTIN [Concomitant]
     Indication: CANCER PAIN
     Dosage: 10 MG, DAILY (1/D)
     Route: 048
     Dates: start: 20070807, end: 20070824
  8. MAGNESIUM OXIDE [Concomitant]
     Dosage: 1.2 G, DAILY (1/D)
     Route: 048
     Dates: start: 20070810, end: 20070824
  9. OPSO [Concomitant]
     Indication: CANCER PAIN
     Dosage: 5 MG, DAILY (1/D)
     Route: 048
     Dates: start: 20070804, end: 20070823

REACTIONS (2)
  - GASTROINTESTINAL PERFORATION [None]
  - STRESS CARDIOMYOPATHY [None]
